FAERS Safety Report 6497477-7 (Version None)
Quarter: 2009Q4

REPORT INFORMATION
  Report Type: 
  Country: None (occurrence: None)
  Receive Date: 20091211
  Receipt Date: 20091126
  Transmission Date: 20100525
  Serious: Yes (Hospitalization)
  Sender: FDA-Public Use
  Company Number: AUR-APL-2009-01492

PATIENT
  Age: 79 Year
  Sex: Male
  Weight: 98 kg

DRUGS (10)
  1. TORESEMIDE [Suspect]
     Indication: RENAL IMPAIRMENT
     Dosage: 100MG DAILY ORAL
     Route: 048
  2. SIMVASTATIN [Suspect]
     Dosage: 40MG DAILY ORAL
     Route: 048
     Dates: start: 20070901, end: 20090406
  3. INSPRA [Suspect]
     Indication: CARDIAC FAILURE
     Dosage: 25MG DAILY ORAL
     Route: 048
     Dates: start: 20080901
  4. AMOXICILLIN AND CLAVULANATE POTASSIUM [Suspect]
     Indication: URINARY TRACT INFECTION
     Dosage: 875 MG/125MG ORAL
     Route: 048
     Dates: start: 20090318, end: 20090328
  5. ISOPHANE INSULIN [Suspect]
     Indication: TYPE 2 DIABETES MELLITUS
     Dosage: 28/0/8 IU BID SUBQ
     Route: 058
     Dates: start: 20070901
  6. KALINOR [Suspect]
     Indication: ELECTROLYTE SUBSTITUTION THERAPY
     Dosage: 1DF BID ORAL
     Route: 048
  7. EMBOLEX [Suspect]
     Indication: BEDRIDDEN
     Dosage: 3000IU DAILY SUBQ
     Route: 058
     Dates: start: 20080901
  8. OMEPRAZOLE [Suspect]
     Indication: PROPHYLAXIS AGAINST GASTROINTESTINAL ULCER
     Dosage: 40 MG DAILY ORAL
     Route: 048
     Dates: start: 20080901
  9. VOLTAREN [Suspect]
     Indication: OSTEOARTHRITIS
     Dosage: 1-2 TABLS AS NEEDED/WEEK ORAL
     Route: 048
     Dates: start: 20070101, end: 20091001
  10. ZOLPIDEM TARTRATE [Concomitant]

REACTIONS (4)
  - ALCOHOLIC LIVER DISEASE [None]
  - DIARRHOEA [None]
  - HEPATIC ENZYME INCREASED [None]
  - URINARY TRACT INFECTION [None]
